FAERS Safety Report 16514209 (Version 2)
Quarter: 2019Q3

REPORT INFORMATION
  Report Type: Spontaneous
  Country: TW (occurrence: TW)
  Receive Date: 20190701
  Receipt Date: 20190709
  Transmission Date: 20191004
  Serious: Yes (Other)
  Sender: FDA-Public Use
  Company Number: TW-ROCHE-2346200

PATIENT
  Age: 58 Year
  Sex: Female

DRUGS (6)
  1. VISUDYNE [Suspect]
     Active Substance: VERTEPORFIN
     Indication: CHOROIDAL HAEMANGIOMA
     Dosage: 6 MG/M2 (BODY SURFACE), UNK
     Route: 065
  2. VISUDYNE [Suspect]
     Active Substance: VERTEPORFIN
     Indication: OFF LABEL USE
  3. BEVACIZUMAB. [Suspect]
     Active Substance: BEVACIZUMAB
     Indication: OFF LABEL USE
  4. BEVACIZUMAB. [Suspect]
     Active Substance: BEVACIZUMAB
     Indication: CHOROIDAL HAEMANGIOMA
     Dosage: 1.25 MG, UNK
     Route: 031
  5. RANIBIZUMAB. [Suspect]
     Active Substance: RANIBIZUMAB
     Indication: OFF LABEL USE
  6. RANIBIZUMAB. [Suspect]
     Active Substance: RANIBIZUMAB
     Indication: CHOROIDAL HAEMANGIOMA
     Dosage: UNK
     Route: 031

REACTIONS (4)
  - Off label use [Unknown]
  - Cystoid macular oedema [Unknown]
  - Subretinal fluid [Unknown]
  - Product use in unapproved indication [Unknown]
